FAERS Safety Report 6385772-1 (Version None)
Quarter: 2009Q4

REPORT INFORMATION
  Report Type: 
  Country: None (occurrence: None)
  Receive Date: 20091002
  Receipt Date: 20080929
  Transmission Date: 20100525
  Serious: Yes (Other)
  Sender: FDA-Public Use
  Company Number: US-ASTRAZENECA-2008UW20625

PATIENT
  Age: 61 Year
  Sex: Female

DRUGS (5)
  1. ARIMIDEX [Suspect]
     Indication: BREAST CANCER FEMALE
     Route: 048
     Dates: start: 20040101
  2. BONIVA [Concomitant]
     Dosage: EVERY THREE MONTHS
  3. CHONDROITIN [Concomitant]
  4. STEROIDS [Concomitant]
  5. CALCIUM/VITAMIN D [Concomitant]

REACTIONS (6)
  - ALOPECIA [None]
  - BONE DISORDER [None]
  - DRUG DOSE OMISSION [None]
  - HIP FRACTURE [None]
  - ILL-DEFINED DISORDER [None]
  - LOWER LIMB FRACTURE [None]
